FAERS Safety Report 17724979 (Version 5)
Quarter: 2021Q2

REPORT INFORMATION
  Report Type: Report from Study
  Country: US (occurrence: US)
  Receive Date: 20200429
  Receipt Date: 20210510
  Transmission Date: 20210716
  Serious: No
  Sender: FDA-Public Use
  Company Number: NVSC2020US115798

PATIENT
  Sex: Male

DRUGS (1)
  1. COSENTYX [Suspect]
     Active Substance: SECUKINUMAB
     Indication: PRODUCT USED FOR UNKNOWN INDICATION
     Dosage: UNK
     Route: 065

REACTIONS (3)
  - Pruritus [Not Recovered/Not Resolved]
  - Rash [Recovering/Resolving]
  - Product dose omission issue [Unknown]
